FAERS Safety Report 10648626 (Version 2)
Quarter: 2015Q1

REPORT INFORMATION
  Report Type: Spontaneous
  Country: IT (occurrence: IT)
  Receive Date: 20141212
  Receipt Date: 20150204
  Transmission Date: 20150720
  Serious: Yes (Other)
  Sender: FDA-Public Use
  Company Number: IT-ASTRAZENECA-2014SE94134

PATIENT
  Age: 51 Year
  Sex: Male

DRUGS (9)
  1. TICAGRELOR [Interacting]
     Active Substance: TICAGRELOR
     Route: 048
  2. TELMISARTAN. [Concomitant]
     Active Substance: TELMISARTAN
  3. ASPIRIN. [Concomitant]
     Active Substance: ASPIRIN
     Route: 042
  4. TICAGRELOR [Suspect]
     Active Substance: TICAGRELOR
     Route: 048
  5. ASPIRIN. [Concomitant]
     Active Substance: ASPIRIN
     Route: 042
  6. CARVEDILOL. [Concomitant]
     Active Substance: CARVEDILOL
  7. CARVEDILOL. [Concomitant]
     Active Substance: CARVEDILOL
  8. IVABRADINE [Interacting]
     Active Substance: IVABRADINE
     Indication: HEART RATE
     Route: 065
  9. ATORVASTATIN [Concomitant]
     Active Substance: ATORVASTATIN

REACTIONS (3)
  - Bradycardia [Unknown]
  - Sinus arrest [Unknown]
  - Drug interaction [Unknown]
